FAERS Safety Report 25140845 (Version 1)
Quarter: 2025Q1

REPORT INFORMATION
  Report Type: Spontaneous
  Country: IT (occurrence: IT)
  Receive Date: 20250331
  Receipt Date: 20250331
  Transmission Date: 20250409
  Serious: Yes (Disabling)
  Sender: PFIZER
  Company Number: IT-PFIZER INC-202500058717

PATIENT
  Age: 40 Year
  Sex: Male
  Weight: 90 kg

DRUGS (2)
  1. SOMAVERT [Suspect]
     Active Substance: PEGVISOMANT
     Indication: Growth hormone-producing pituitary tumour
     Dosage: UNK, DAILY
     Route: 058
     Dates: start: 2016
  2. TELMISARTAN ZENTIVA [Concomitant]
     Indication: Hypertension
     Dosage: 80 MG, DAILY

REACTIONS (1)
  - Arthropathy [Unknown]

NARRATIVE: CASE EVENT DATE: 20180101
